FAERS Safety Report 7702204-9 (Version None)
Quarter: 2011Q3

REPORT INFORMATION
  Report Type: 
  Country: None (occurrence: None)
  Receive Date: 20110822
  Receipt Date: 20110809
  Transmission Date: 20111222
  Serious: Yes (Death)
  Sender: FDA-Public Use
  Company Number: JP-MYLANLABS-2011S1016735

PATIENT
  Age: 7 Month
  Sex: Female

DRUGS (10)
  1. CYTARABINE [Suspect]
     Indication: ACUTE MYELOID LEUKAEMIA
     Dosage: 2000 MG/M2 FOR 7 DAYS
     Route: 065
  2. ETOPOSIDE [Suspect]
     Indication: ACUTE MYELOID LEUKAEMIA
     Dosage: 150 MG/M2 FOR 5 DAYS
     Route: 065
  3. CYTARABINE [Suspect]
     Dosage: 6MG ON DAY 6
     Route: 065
  4. HYDROCORTISONE [Suspect]
     Route: 065
  5. METHOTREXATE [Suspect]
     Indication: ACUTE MYELOID LEUKAEMIA
     Dosage: 3MG ON DAY 6
     Route: 037
  6. NEUPOGEN [Suspect]
     Indication: NEUTROPENIA
     Route: 065
  7. MITOXANTRONE [Suspect]
     Indication: ACUTE MYELOID LEUKAEMIA
     Dosage: 5 MG/M2 FOR 5 DAYS
     Route: 065
  8. CYTARABINE [Suspect]
     Route: 065
  9. HYDROCORTISONE [Suspect]
     Indication: ACUTE MYELOID LEUKAEMIA
     Dosage: 10MG ON DAY 6
     Route: 065
  10. METHOTREXATE [Suspect]
     Route: 037

REACTIONS (4)
  - RESPIRATORY FAILURE [None]
  - ACUTE RESPIRATORY DISTRESS SYNDROME [None]
  - NEUTROPENIA [None]
  - LYMPHOHISTIOCYTOSIS [None]
